FAERS Safety Report 8990718 (Version 2)
Quarter: 2013Q1

REPORT INFORMATION
  Report Type: Spontaneous
  Country: US (occurrence: US)
  Receive Date: 20121228
  Receipt Date: 20130103
  Transmission Date: 20140127
  Serious: No
  Sender: FDA-Public Use
  Company Number: US-PFIZER INC-2012330069

PATIENT
  Sex: Male

DRUGS (4)
  1. PRISTIQ [Suspect]
     Dosage: 50 MG, UNK
  2. PRISTIQ [Suspect]
     Dosage: 100 MG, UNK
  3. PRISTIQ [Suspect]
     Dosage: 150 MG, UNK
  4. ABILIFY [Suspect]
     Dosage: UNK

REACTIONS (1)
  - Drug ineffective [Unknown]
